FAERS Safety Report 8143745-2 (Version None)
Quarter: 2012Q1

REPORT INFORMATION
  Report Type: 
  Country: None (occurrence: None)
  Receive Date: 20120217
  Receipt Date: 20120211
  Transmission Date: 20120608
  Serious: Yes (Hospitalization)
  Sender: FDA-Public Use
  Company Number: US-BAYER-2011-049641

PATIENT
  Age: 28 Year
  Sex: Female

DRUGS (13)
  1. SPIRONOLACTONE [Concomitant]
  2. BUSPAR [Concomitant]
  3. LORATADINE [Concomitant]
     Dosage: 10 MG, QD
  4. YASMIN [Suspect]
     Indication: MENSTRUATION IRREGULAR
     Dosage: UNK
     Dates: start: 20070101
  5. DROSPIRENONE AND ETHINYL ESTRADIOL [Suspect]
     Indication: MENSTRUATION IRREGULAR
     Dosage: UNK
     Dates: start: 20070101
  6. MELATONIN [Concomitant]
     Dosage: 3 MG, QD
  7. BUSPIRONE HCL [Concomitant]
  8. TOPAMAX [Concomitant]
  9. DARVOCET [Concomitant]
  10. ZOSYN [Concomitant]
  11. FLUOXETINE [Concomitant]
  12. TORADOL [Concomitant]
  13. POTASSIUM CHLORIDE [Concomitant]
     Dosage: 99 MEQ, QD

REACTIONS (7)
  - BILE DUCT STONE [None]
  - FEAR [None]
  - CHOLELITHIASIS [None]
  - INJURY [None]
  - PAIN [None]
  - CHOLECYSTITIS CHRONIC [None]
  - PANCREATITIS [None]
